FAERS Safety Report 15226996 (Version 10)
Quarter: 2021Q2

REPORT INFORMATION
  Report Type: Spontaneous
  Country: US (occurrence: US)
  Receive Date: 20180801
  Receipt Date: 20210512
  Transmission Date: 20210716
  Serious: Yes (Hospitalization, Other)
  Sender: FDA-Public Use
  Company Number: US-PFIZER INC-2015469503

PATIENT
  Age: 65 Year
  Sex: Male
  Weight: 150 kg

DRUGS (24)
  1. LYRICA [Suspect]
     Active Substance: PREGABALIN
     Dosage: 150 MG, UNK
  2. DOXEPIN HYDROCHLORIDE. [Concomitant]
     Active Substance: DOXEPIN HYDROCHLORIDE
     Dosage: 25 MG, 1X/DAY (BEDTIME)
  3. COUMADIN [Concomitant]
     Active Substance: WARFARIN SODIUM
     Dosage: 3 MG, 1X/DAY
  4. INDOCIN [Concomitant]
     Active Substance: INDOMETHACIN
     Indication: GOUT
     Dosage: 50 MG, AS NEEDED (WITH FOOD EVERY 8 HOURS)
     Route: 048
  5. ALLOPURINOL W/COLCHICINE [Concomitant]
     Indication: GOUT
     Dosage: 1 DF, 1X/DAY (ALLOPURINOL/COLCHICINE 160/0.6 MG)
     Route: 048
  6. METFORMIN HYDROCHLORIDE. [Concomitant]
     Active Substance: METFORMIN HYDROCHLORIDE
     Indication: DIABETES MELLITUS
     Dosage: 500 MG, 2X/DAY (24 HOUR 1 TABLET WITH EVENING MEAL)
     Route: 048
  7. METOPROLOL TARTRATE. [Concomitant]
     Active Substance: METOPROLOL TARTRATE
     Indication: ESSENTIAL HYPERTENSION
     Dosage: 150 MG, 1X/DAY
     Route: 048
  8. RESVERATROL [Concomitant]
     Active Substance: DIETARY SUPPLEMENT\RESVERATROL
     Dosage: 250 MG, UNK (AS DIRECTED)
     Route: 048
  9. GABAPENTIN. [Concomitant]
     Active Substance: GABAPENTIN
     Indication: PARAESTHESIA
     Dosage: 600 MG, 3X/DAY
     Route: 048
  10. TRAMADOL HCL [Concomitant]
     Active Substance: TRAMADOL HYDROCHLORIDE
     Indication: PAIN
     Dosage: 50 MG, AS NEEDED (EVERY 8 HOURS)
  11. DIGOXIN. [Concomitant]
     Active Substance: DIGOXIN
     Indication: ATRIAL FIBRILLATION
     Dosage: 0.25 MG, 1X/DAY
     Route: 048
  12. FLOMAX [Concomitant]
     Active Substance: TAMSULOSIN HYDROCHLORIDE
     Indication: PROSTATOMEGALY
     Dosage: 0.4 MG, 1X/DAY (30 MINUTES AFTER SAME MEAL EACH AT BEDTIME)
     Route: 048
  13. METFORMIN HYDROCHLORIDE. [Concomitant]
     Active Substance: METFORMIN HYDROCHLORIDE
     Indication: DIABETIC NEUROPATHY
  14. LYRICA [Suspect]
     Active Substance: PREGABALIN
     Indication: AUTONOMIC NEUROPATHY
     Dosage: 150 MG, DAILY
     Route: 048
  15. LYRICA [Suspect]
     Active Substance: PREGABALIN
     Indication: INTERVERTEBRAL DISC DEGENERATION
     Dosage: 50 MG, UNK
  16. LISINOPRIL. [Concomitant]
     Active Substance: LISINOPRIL
     Indication: ESSENTIAL HYPERTENSION
     Dosage: 40 MG, 1X/DAY
     Route: 048
  17. LASIX [Concomitant]
     Active Substance: FUROSEMIDE
     Indication: ESSENTIAL HYPERTENSION
     Dosage: 20 MG, 1X/DAY
     Route: 048
  18. DILTIAZEM HCL [Concomitant]
     Active Substance: DILTIAZEM HYDROCHLORIDE
     Indication: ESSENTIAL HYPERTENSION
     Dosage: 300 MG, 1X/DAY
     Route: 048
  19. LYRICA [Suspect]
     Active Substance: PREGABALIN
     Indication: DIABETIC NEUROPATHY
     Dosage: 150 MG, 2X/DAY
     Route: 048
  20. GABAPENTIN. [Concomitant]
     Active Substance: GABAPENTIN
     Indication: HYPOAESTHESIA
  21. AMLODIPINE BESYLATE. [Concomitant]
     Active Substance: AMLODIPINE BESYLATE
     Indication: ESSENTIAL HYPERTENSION
     Dosage: 5 MG, 1X/DAY
     Route: 048
  22. AVODART [Concomitant]
     Active Substance: DUTASTERIDE
     Indication: PROSTATOMEGALY
     Dosage: 0.5 MG, 1X/DAY
     Route: 048
  23. ASPIRIN. [Concomitant]
     Active Substance: ASPIRIN
     Dosage: 325 MG, 1X/DAY
  24. GABAPENTIN. [Concomitant]
     Active Substance: GABAPENTIN
     Indication: DIABETIC NEUROPATHY

REACTIONS (7)
  - Cholecystitis infective [Unknown]
  - Muscle atrophy [Unknown]
  - Disorientation [Unknown]
  - Coma [Unknown]
  - Cholelithiasis [Unknown]
  - Hypoacusis [Unknown]
  - Drug ineffective [Unknown]
